FAERS Safety Report 18207848 (Version 3)
Quarter: 2022Q3

REPORT INFORMATION
  Report Type: Spontaneous
  Country: CA (occurrence: CA)
  Receive Date: 20200828
  Receipt Date: 20220907
  Transmission Date: 20221027
  Serious: Yes (Hospitalization, Other)
  Sender: FDA-Public Use
  Company Number: CA-JNJFOC-20200843540

PATIENT
  Age: 60 Year
  Sex: Male

DRUGS (32)
  1. STELARA [Suspect]
     Active Substance: USTEKINUMAB
     Indication: Product used for unknown indication
     Route: 058
  2. CALCIUM CARBONATE\MAGNESIUM CARBONATE\MAGNESIUM OXIDE\MAGNESIUM TRISIL [Suspect]
     Active Substance: CALCIUM CARBONATE\MAGNESIUM CARBONATE\MAGNESIUM OXIDE\MAGNESIUM TRISILICATE
     Indication: Product used for unknown indication
     Route: 065
  3. COSENTYX [Suspect]
     Active Substance: SECUKINUMAB
     Indication: Product used for unknown indication
     Route: 065
  4. ENBREL [Suspect]
     Active Substance: ETANERCEPT
     Indication: Psoriatic arthropathy
     Route: 065
  5. ERGOCALCIFEROL [Suspect]
     Active Substance: ERGOCALCIFEROL
     Indication: Product used for unknown indication
     Route: 065
  6. OMEPRAZOLE [Suspect]
     Active Substance: OMEPRAZOLE
     Indication: Product used for unknown indication
     Route: 048
  7. OTEZLA [Suspect]
     Active Substance: APREMILAST
     Indication: Psoriatic arthropathy
     Route: 065
  8. TALTZ [Suspect]
     Active Substance: IXEKIZUMAB
     Indication: Psoriatic arthropathy
     Route: 065
  9. AMIODARONE [Suspect]
     Active Substance: AMIODARONE
     Indication: Product used for unknown indication
     Route: 065
  10. METOPROLOL [Suspect]
     Active Substance: METOPROLOL
     Indication: Product used for unknown indication
     Route: 065
  11. METOPROLOL [Suspect]
     Active Substance: METOPROLOL
     Route: 048
  12. METOPROLOL [Suspect]
     Active Substance: METOPROLOL
     Route: 048
  13. METOPROLOL [Suspect]
     Active Substance: METOPROLOL
  14. PREDNISONE [Suspect]
     Active Substance: PREDNISONE
     Indication: Psoriatic arthropathy
     Route: 065
  15. APIXABAN [Concomitant]
     Active Substance: APIXABAN
     Indication: Product used for unknown indication
     Route: 065
  16. APIXABAN [Concomitant]
     Active Substance: APIXABAN
     Route: 048
  17. FOLIC ACID [Concomitant]
     Active Substance: FOLIC ACID
     Indication: Product used for unknown indication
     Route: 065
  18. FOLIC ACID [Concomitant]
     Active Substance: FOLIC ACID
     Route: 065
  19. HYDROXYCHLOROQUINE SULFATE [Concomitant]
     Active Substance: HYDROXYCHLOROQUINE SULFATE
     Indication: Psoriatic arthropathy
     Route: 065
  20. LASIX [Concomitant]
     Active Substance: FUROSEMIDE
     Indication: Product used for unknown indication
     Route: 065
  21. LASIX [Concomitant]
     Active Substance: FUROSEMIDE
     Route: 048
  22. METHOTREXATE [Concomitant]
     Active Substance: METHOTREXATE
     Indication: Psoriatic arthropathy
     Route: 058
  23. METHOTREXATE [Concomitant]
     Active Substance: METHOTREXATE
     Route: 048
  24. RAMIPRIL [Concomitant]
     Active Substance: RAMIPRIL
     Route: 048
  25. RAMIPRIL [Concomitant]
     Active Substance: RAMIPRIL
     Route: 048
  26. RAMIPRIL [Concomitant]
     Active Substance: RAMIPRIL
     Route: 065
  27. SPIRONOLACTONE [Concomitant]
     Active Substance: SPIRONOLACTONE
     Route: 048
  28. SULFASALAZINE [Concomitant]
     Active Substance: SULFASALAZINE
     Indication: Product used for unknown indication
     Route: 065
  29. SULFASALAZINE [Concomitant]
     Active Substance: SULFASALAZINE
     Route: 048
  30. SULFASALAZINE [Concomitant]
     Active Substance: SULFASALAZINE
     Route: 048
  31. TAFAMIDIS [Concomitant]
     Active Substance: TAFAMIDIS
     Indication: Psoriatic arthropathy
     Route: 065
  32. ELIQUIS [Concomitant]
     Active Substance: APIXABAN
     Indication: Product used for unknown indication
     Route: 065

REACTIONS (3)
  - Cardiac failure congestive [Recovered/Resolved]
  - Amyloidosis [Recovered/Resolved]
  - Adverse drug reaction [Recovered/Resolved]
